FAERS Safety Report 9907520 (Version 1)
Quarter: 2014Q1

REPORT INFORMATION
  Report Type: Report from Study
  Country: DE (occurrence: DE)
  Receive Date: 20140218
  Receipt Date: 20140218
  Transmission Date: 20141002
  Serious: Yes (Hospitalization)
  Sender: FDA-Public Use
  Company Number: DE-BAXTER-2014BAX007108

PATIENT
  Age: 20 Year
  Sex: 0
  Weight: 60 kg

DRUGS (3)
  1. ADVATE 250 I.E. [Suspect]
     Indication: FACTOR VIII DEFICIENCY
     Route: 042
     Dates: start: 20090811, end: 20140117
  2. ADVATE 250 I.E. [Suspect]
     Indication: PROPHYLAXIS
  3. FERRITIN [Concomitant]
     Indication: SERUM FERRITIN DECREASED
     Route: 048
     Dates: start: 20120201, end: 20120605

REACTIONS (2)
  - Haemoglobin decreased [Recovering/Resolving]
  - Syncope [Recovering/Resolving]
